FAERS Safety Report 11855100 (Version 2)
Quarter: 2016Q1

REPORT INFORMATION
  Report Type: Report from Study
  Country: TR (occurrence: TR)
  Receive Date: 20151221
  Receipt Date: 20160114
  Transmission Date: 20160526
  Serious: No
  Sender: FDA-Public Use
  Company Number: TR-EMD SERONO-8059533

PATIENT
  Age: 61 Year
  Sex: Female
  Weight: 89 kg

DRUGS (3)
  1. SAIZEN [Suspect]
     Active Substance: SOMATROPIN
     Dosage: INCREASED DOSE
  2. SAIZEN [Suspect]
     Active Substance: SOMATROPIN
     Dosage: RESUMED AT LOWER DOSE
  3. SAIZEN [Suspect]
     Active Substance: SOMATROPIN
     Indication: GROWTH HORMONE DEFICIENCY
     Dates: start: 20151107

REACTIONS (1)
  - Ocular hyperaemia [Recovering/Resolving]

NARRATIVE: CASE EVENT DATE: 20151209
